FAERS Safety Report 7956507-3 (Version None)
Quarter: 2011Q4

REPORT INFORMATION
  Report Type: 
  Country: None (occurrence: None)
  Receive Date: 20111205
  Receipt Date: 20111128
  Transmission Date: 20120403
  Serious: Yes (Other)
  Sender: FDA-Public Use
  Company Number: US-PFIZER INC-2011290544

PATIENT

DRUGS (2)
  1. ZYVOX [Suspect]
     Dosage: UNK
  2. FENTANYL-100 [Suspect]

REACTIONS (1)
  - SEROTONIN SYNDROME [None]
